FAERS Safety Report 16881368 (Version 2)
Quarter: 2019Q4

REPORT INFORMATION
  Report Type: Spontaneous
  Country: BR (occurrence: BR)
  Receive Date: 20191003
  Receipt Date: 20191024
  Transmission Date: 20200122
  Serious: Yes (Death, Other)
  Sender: FDA-Public Use
  Company Number: BR-AMGEN-BRASP2019163468

PATIENT
  Age: 11 Month
  Sex: Female

DRUGS (1)
  1. BLINCYTO [Suspect]
     Active Substance: BLINATUMOMAB
     Indication: CENTRAL NERVOUS SYSTEM LEUKAEMIA
     Dosage: UNK
     Route: 042
     Dates: start: 20190822

REACTIONS (3)
  - Infusion site haemorrhage [Unknown]
  - Acute lymphocytic leukaemia recurrent [Fatal]
  - Sepsis [Unknown]

NARRATIVE: CASE EVENT DATE: 2019
